FAERS Safety Report 19771256 (Version 1)
Quarter: 2021Q3

REPORT INFORMATION
  Report Type: Spontaneous
  Country: CH (occurrence: CH)
  Receive Date: 20210901
  Receipt Date: 20210901
  Transmission Date: 20211014
  Serious: Yes (Other)
  Sender: FDA-Public Use
  Company Number: CH-SLATE RUN PHARMACEUTICALS-21CH000654

PATIENT

DRUGS (7)
  1. CO?AMOXICILLIN [Concomitant]
     Active Substance: AMOXICILLIN\CLAVULANATE POTASSIUM
     Indication: MATERNAL EXPOSURE TIMING UNSPECIFIED
     Route: 015
  2. CEFTRIAXONE. [Concomitant]
     Active Substance: CEFTRIAXONE
     Indication: MATERNAL EXPOSURE TIMING UNSPECIFIED
     Route: 015
  3. CORTICOSTEROIDS [Concomitant]
     Active Substance: CORTICOSTEROID NOS
     Indication: MATERNAL EXPOSURE TIMING UNSPECIFIED
     Route: 015
  4. SULFADIAZINE. [Concomitant]
     Active Substance: SULFADIAZINE
     Indication: MATERNAL EXPOSURE TIMING UNSPECIFIED
     Route: 015
  5. PYRIMETHAMINE [Concomitant]
     Active Substance: PYRIMETHAMINE
     Indication: MATERNAL EXPOSURE TIMING UNSPECIFIED
     Dosage: 25 UNK
     Route: 015
  6. FOLINIC ACID [Concomitant]
     Active Substance: LEUCOVORIN
     Indication: MATERNAL EXPOSURE TIMING UNSPECIFIED
     Route: 015
  7. AZITHROMYCIN USP [Suspect]
     Active Substance: AZITHROMYCIN
     Indication: MATERNAL EXPOSURE TIMING UNSPECIFIED
     Dosage: UNK
     Route: 015

REACTIONS (4)
  - Foetal exposure during pregnancy [Recovered/Resolved]
  - Nonreassuring foetal heart rate pattern [Recovered/Resolved]
  - Low birth weight baby [Recovered/Resolved]
  - Newborn persistent pulmonary hypertension [Recovered/Resolved]
